FAERS Safety Report 4658634-5 (Version None)
Quarter: 2005Q2

REPORT INFORMATION
  Report Type: 
  Country: None (occurrence: None)
  Receive Date: 20050511
  Receipt Date: 20050503
  Transmission Date: 20051028
  Serious: Yes (Hospitalization, Disabling)
  Sender: FDA-Public Use
  Company Number: GB-GLAXOSMITHKLINE-B0380390A

PATIENT
  Age: 68 Year
  Sex: Female

DRUGS (8)
  1. AVANDAMET [Suspect]
     Indication: DIABETES MELLITUS
     Dosage: 2TAB TWICE PER DAY
     Route: 048
     Dates: start: 20040701, end: 20050301
  2. ROSUVASTATIN [Concomitant]
     Indication: BLOOD CHOLESTEROL INCREASED
     Route: 048
     Dates: start: 20040616
  3. ESOMEPRAZOLE [Concomitant]
     Route: 048
     Dates: start: 20040428
  4. FELODIPINE [Concomitant]
     Route: 048
     Dates: start: 20011031
  5. TELMISARTAN [Concomitant]
     Route: 048
     Dates: start: 20020429
  6. THYROXINE [Concomitant]
     Route: 065
  7. GLICLAZIDE [Concomitant]
     Route: 065
  8. METFORMIN HCL [Concomitant]
     Route: 065

REACTIONS (3)
  - ANAEMIA [None]
  - DYSPNOEA [None]
  - OEDEMA PERIPHERAL [None]
